FAERS Safety Report 5783125-8 (Version None)
Quarter: 2008Q2

REPORT INFORMATION
  Report Type: 
  Country: None (occurrence: None)
  Receive Date: 20080624
  Receipt Date: 20080613
  Transmission Date: 20081010
  Serious: Yes (Hospitalization)
  Sender: FDA-Public Use
  Company Number: DE-ROCHE-553173

PATIENT
  Sex: Female
  Weight: 50 kg

DRUGS (4)
  1. CAPECITABINE [Suspect]
     Indication: METASTATIC GASTRIC CANCER
     Dosage: GIVEN TWICE DAILY, STARTING ON DAY 1 TILL DAY 15 EVERY THREE WEEKS. PERMANANTLY DISCONTINUED.
     Route: 048
     Dates: start: 20080206
  2. DOCETAXEL [Suspect]
     Indication: METASTATIC GASTRIC CANCER
     Dosage: DOSAGE FORM REPORTED AS INFUSION. GIVEN OVER ONE HOUR ON DAYS ONE AND EIGHT EVERY THREE WEEKS.
     Route: 042
     Dates: start: 20080206
  3. OXALIPLATIN [Suspect]
     Dosage: DOSAGE FORM REPORTED AS INFUSION. GIVEN OVER TWO HOURS ON DAYS ONE AND EIGHT EVERY THREE WEEKS.
     Route: 042
     Dates: start: 20080206
  4. METOCLOPRAMID [Concomitant]
     Dosage: DRUG NAME: HELOCLOPRAMID
     Dates: start: 20080301

REACTIONS (1)
  - PANCREATITIS [None]
